FAERS Safety Report 7206803-2 (Version None)
Quarter: 2011Q1

REPORT INFORMATION
  Report Type: 
  Country: None (occurrence: None)
  Receive Date: 20110103
  Receipt Date: 20101222
  Transmission Date: 20110831
  Serious: Yes (Hospitalization, Other)
  Sender: FDA-Public Use
  Company Number: PL-SANOFI-AVENTIS-2010SA077328

PATIENT
  Age: 67 Year
  Sex: Male

DRUGS (1)
  1. TERTENSIF - SLOW RELEASE [Suspect]
     Indication: HYPERTENSION
     Route: 048
     Dates: end: 20090101

REACTIONS (4)
  - TRANSIENT GLOBAL AMNESIA [None]
  - SWELLING [None]
  - BLOOD GLUCOSE ABNORMAL [None]
  - BLOOD PRESSURE DECREASED [None]
